FAERS Safety Report 21077946 (Version 1)
Quarter: 2022Q3

REPORT INFORMATION
  Report Type: Spontaneous
  Country: SE (occurrence: SE)
  Receive Date: 20220713
  Receipt Date: 20220713
  Transmission Date: 20221027
  Serious: No
  Sender: FDA-Public Use
  Company Number: SE-PERRIGO-2022PAD00053

PATIENT

DRUGS (7)
  1. IBUPROFEN [Suspect]
     Active Substance: IBUPROFEN
     Indication: COVID-19
     Dosage: UNK
     Route: 065
  2. HUMAN IMMUNOGLOBULIN G [Concomitant]
     Active Substance: HUMAN IMMUNOGLOBULIN G
     Indication: COVID-19
     Dosage: 1 G/KG FOR 2 DAYS
     Route: 042
  3. ACETAMINOPHEN [Concomitant]
     Active Substance: ACETAMINOPHEN
     Indication: COVID-19
     Dosage: UNK
     Route: 065
  4. CLOPIDOGREL [Concomitant]
     Active Substance: CLOPIDOGREL BISULFATE
     Indication: COVID-19
     Dosage: UNK
     Route: 065
  5. ASPIRIN [Concomitant]
     Active Substance: ASPIRIN
     Indication: COVID-19
     Dosage: 50 MG/KG, QD
     Route: 065
  6. PREDNISOLONE [Concomitant]
     Active Substance: PREDNISOLONE
     Indication: COVID-19
     Dosage: 2 MG/KG, QD
     Route: 065
  7. INFLIXIMAB [Concomitant]
     Active Substance: INFLIXIMAB
     Indication: COVID-19
     Dosage: 5 MG/KG

REACTIONS (1)
  - Drug ineffective for unapproved indication [Unknown]
